FAERS Safety Report 7339775-0 (Version None)
Quarter: 2011Q1

REPORT INFORMATION
  Report Type: 
  Country: None (occurrence: None)
  Receive Date: 20110304
  Receipt Date: 20110304
  Transmission Date: 20110831
  Serious: Yes (Other)
  Sender: FDA-Public Use
  Company Number: None

PATIENT
  Age: 67 Year
  Sex: Female
  Weight: 60.782 kg

DRUGS (7)
  1. PREMARIN [Concomitant]
  2. LISINOPRIL [Concomitant]
  3. PROGESTERONE [Concomitant]
  4. PRILOSEC [Concomitant]
  5. HCG INJECTABLE [Suspect]
     Indication: WEIGHT CONTROL
  6. FLUTICASONE SPRAY [Concomitant]
  7. EYE DROPS - BRIMONIDINE TARTRATE + LUMIGAN [Concomitant]

REACTIONS (2)
  - FALL [None]
  - PUBIS FRACTURE [None]
